FAERS Safety Report 25621556 (Version 1)
Quarter: 2025Q3

REPORT INFORMATION
  Report Type: Other
  Country: CA (occurrence: CA)
  Receive Date: 20250730
  Receipt Date: 20250730
  Transmission Date: 20251021
  Serious: Yes (Hospitalization)
  Sender: ESJAY PHARMA
  Company Number: CA-ESJAY PHARMA-000871

PATIENT
  Age: 44 Year
  Sex: Male

DRUGS (3)
  1. RISPERIDONE [Suspect]
     Active Substance: RISPERIDONE
     Indication: Schizophrenia
  2. Xanomeline/Trospium chloride [Concomitant]
     Indication: Schizophrenia
  3. Xanomeline/Trospium chloride [Concomitant]
     Indication: Schizophrenia

REACTIONS (2)
  - Motor dysfunction [Recovered/Resolved]
  - Metabolic disorder [Recovering/Resolving]
